FAERS Safety Report 12318989 (Version 1)
Quarter: 2016Q2

REPORT INFORMATION
  Report Type: Spontaneous
  Country: IE (occurrence: IE)
  Receive Date: 20160429
  Receipt Date: 20160429
  Transmission Date: 20160815
  Serious: Yes (Other)
  Sender: FDA-Public Use
  Company Number: IE-KADMON PHARMACEUTICALS, LLC-KAD201604-001608

PATIENT
  Age: 48 Year
  Sex: Male

DRUGS (10)
  1. HARVONI [Suspect]
     Active Substance: LEDIPASVIR\SOFOSBUVIR
     Indication: HEPATITIS C
     Dosage: FILM-COATED TABLET
     Route: 048
     Dates: start: 20160225
  2. PREDNISOLONE. [Concomitant]
     Active Substance: PREDNISOLONE
  3. KEPPRA [Concomitant]
     Active Substance: LEVETIRACETAM
     Dosage: FILM-COATED TABLET
  4. METFORMIN [Concomitant]
     Active Substance: METFORMIN HYDROCHLORIDE
  5. RIBAVIRIN. [Suspect]
     Active Substance: RIBAVIRIN
     Indication: HEPATITIS C
     Dosage: FILM-COATED TABLET
     Route: 048
     Dates: start: 20160225
  6. CALCICHEW [Concomitant]
     Active Substance: CALCIUM CARBONATE
     Dosage: CHEWABLE TABLET
  7. METHADONE [Concomitant]
     Active Substance: METHADONE HYDROCHLORIDE
  8. NEORAL [Concomitant]
     Active Substance: CYCLOSPORINE
     Dosage: CAPSULE
  9. SILDENAFIL. [Concomitant]
     Active Substance: SILDENAFIL
  10. OMEPRAZOLE. [Concomitant]
     Active Substance: OMEPRAZOLE

REACTIONS (1)
  - Facial paralysis [Not Recovered/Not Resolved]

NARRATIVE: CASE EVENT DATE: 20160402
